FAERS Safety Report 7602565-5 (Version None)
Quarter: 2011Q3

REPORT INFORMATION
  Report Type: 
  Country: None (occurrence: None)
  Receive Date: 20110707
  Receipt Date: 20110422
  Transmission Date: 20111222
  Serious: Yes (Hospitalization)
  Sender: FDA-Public Use
  Company Number: US-CYPR-2011-000005

PATIENT
  Sex: Male
  Weight: 112.9457 kg

DRUGS (15)
  1. METOPROLOL TARTRATE [Concomitant]
  2. NEXIUM [Concomitant]
  3. ATORVASTATIN [Concomitant]
  4. RAMIPRIL [Concomitant]
  5. CYPHER STENT [Concomitant]
  6. CLOPIDOGREL [Suspect]
     Indication: ANTIPLATELET THERAPY
     Dosage: (75 MG QD ORAL) ; (75 MG QD ORAL)
     Route: 048
     Dates: start: 20101028, end: 20110215
  7. CLOPIDOGREL [Suspect]
     Indication: ANGINA PECTORIS
     Dosage: (75 MG QD ORAL) ; (75 MG QD ORAL)
     Route: 048
     Dates: start: 20101028, end: 20110215
  8. CLOPIDOGREL [Suspect]
     Indication: ANTIPLATELET THERAPY
     Dosage: (75 MG QD ORAL) ; (75 MG QD ORAL)
     Route: 048
     Dates: start: 20110219
  9. CLOPIDOGREL [Suspect]
     Indication: ANGINA PECTORIS
     Dosage: (75 MG QD ORAL) ; (75 MG QD ORAL)
     Route: 048
     Dates: start: 20110219
  10. ASPIRIN [Suspect]
     Indication: CORONARY ARTERY DISEASE
     Dosage: (81 MG QD ORAL) ; (325 MG QD ORAL) ; (81 MG QD ORAL)
     Route: 048
     Dates: start: 20091106, end: 20101112
  11. ASPIRIN [Suspect]
     Indication: CORONARY ARTERY DISEASE
     Dosage: (81 MG QD ORAL) ; (325 MG QD ORAL) ; (81 MG QD ORAL)
     Route: 048
     Dates: start: 20101112
  12. ASPIRIN [Suspect]
     Indication: CORONARY ARTERY DISEASE
     Dosage: (81 MG QD ORAL) ; (325 MG QD ORAL) ; (81 MG QD ORAL)
     Route: 048
     Dates: start: 20090901, end: 20091105
  13. TRAZODONE HCL [Concomitant]
  14. ALPRAZOLAM [Concomitant]
  15. ALISKIREN [Concomitant]

REACTIONS (1)
  - DIVERTICULITIS [None]
